FAERS Safety Report 5526591-5 (Version None)
Quarter: 2007Q4

REPORT INFORMATION
  Report Type: 
  Country: None (occurrence: None)
  Receive Date: 20071121
  Receipt Date: 20071121
  Transmission Date: 20080405
  Serious: Yes (Hospitalization)
  Sender: FDA-Public Use
  Company Number: None

PATIENT
  Sex: Female
  Weight: 104 kg

DRUGS (3)
  1. CLOLAR [Suspect]
     Dosage: 252 MG
  2. CYTARABINE [Suspect]
     Dosage: 6300 MG
  3. RED BLOOD CELLS [Concomitant]

REACTIONS (8)
  - ACIDOSIS [None]
  - ACUTE RESPIRATORY FAILURE [None]
  - GENERAL PHYSICAL HEALTH DETERIORATION [None]
  - HAEMODIALYSIS [None]
  - HYPOTENSION [None]
  - SEPSIS [None]
  - SHOCK [None]
  - TACHYCARDIA [None]
